FAERS Safety Report 8020465-6 (Version None)
Quarter: 2012Q1

REPORT INFORMATION
  Report Type: 
  Country: None (occurrence: None)
  Receive Date: 20120103
  Receipt Date: 20111229
  Transmission Date: 20120608
  Serious: Yes (Other)
  Sender: FDA-Public Use
  Company Number: US-PFIZER INC-2010081193

PATIENT
  Sex: Female
  Weight: 99.32 kg

DRUGS (5)
  1. TRICOR [Concomitant]
     Dosage: UNK
  2. SYNTHROID [Concomitant]
     Indication: HYPOTHYROIDISM
     Dosage: 0.275 MG, 1X/DAY (ONE TABLET OF 0.125 MG AND ONE TABLET OF 0.15 MG TOGETHER)
  3. PAXIL [Concomitant]
     Dosage: UNK
  4. LIPITOR [Suspect]
     Indication: BLOOD CHOLESTEROL INCREASED
     Dosage: 10 MG, 1X/DAY
     Route: 048
  5. MULTI-VITAMINS [Concomitant]
     Dosage: UNK

REACTIONS (3)
  - INFLUENZA [None]
  - ERYTHEMA NODOSUM [None]
  - PULMONARY MASS [None]
